FAERS Safety Report 16534938 (Version 3)
Quarter: 2021Q1

REPORT INFORMATION
  Report Type: Other
  Country: US (occurrence: US)
  Receive Date: 20190705
  Receipt Date: 20210301
  Transmission Date: 20210419
  Serious: Yes (Other)
  Sender: FDA-Public Use
  Company Number: US-ROCHE-2345052

PATIENT
  Sex: Male
  Weight: 95.34 kg

DRUGS (2)
  1. OCREVUS [Suspect]
     Active Substance: OCRELIZUMAB
     Indication: RELAPSING-REMITTING MULTIPLE SCLEROSIS
     Dosage: DATE OF TREATMENT: 01/SEP/2017 AND 19/SEP/2017
     Route: 042
     Dates: start: 20170808
  2. OCREVUS [Suspect]
     Active Substance: OCRELIZUMAB
     Dosage: DATE OF TREATMENT: 21/AUG/2018 AND 05/FEB/2019
     Route: 042

REACTIONS (5)
  - Urinary tract infection [Recovered/Resolved]
  - Intentional product use issue [Unknown]
  - Fatigue [Unknown]
  - Feeling abnormal [Not Recovered/Not Resolved]
  - Off label use [Unknown]
